FAERS Safety Report 10277554 (Version 1)
Quarter: 2014Q3

REPORT INFORMATION
  Report Type: Report from Study
  Country: US (occurrence: US)
  Receive Date: 20140703
  Receipt Date: 20140703
  Transmission Date: 20150326
  Serious: Yes (Hospitalization, Other)
  Sender: FDA-Public Use
  Company Number: US-ALEXION PHARMACEUTICALS INC.-A201202794

PATIENT
  Sex: Male

DRUGS (1)
  1. SOLIRIS [Suspect]
     Active Substance: ECULIZUMAB
     Indication: HAEMOLYTIC URAEMIC SYNDROME
     Route: 042

REACTIONS (9)
  - Thrombotic microangiopathy [Unknown]
  - Dizziness [Unknown]
  - Oedema [Unknown]
  - Renal failure chronic [Not Recovered/Not Resolved]
  - Dialysis [Unknown]
  - Anaemia [Unknown]
  - Palpitations [Unknown]
  - Fatigue [Unknown]
  - Thrombocytopenia [Unknown]
